FAERS Safety Report 13567498 (Version 2)
Quarter: 2017Q3

REPORT INFORMATION
  Report Type: Spontaneous
  Country: US (occurrence: US)
  Receive Date: 20170522
  Receipt Date: 20170724
  Transmission Date: 20171127
  Serious: No
  Sender: FDA-Public Use
  Company Number: US-PFIZER INC-2017217408

PATIENT
  Age: 60 Year
  Sex: Female

DRUGS (1)
  1. XELJANZ XR [Suspect]
     Active Substance: TOFACITINIB CITRATE
     Dosage: 5 MG, 2X/DAY
     Route: 048
     Dates: start: 20170421

REACTIONS (6)
  - Weight decreased [Unknown]
  - Fatigue [Unknown]
  - Stomatitis [Unknown]
  - Drug ineffective [Unknown]
  - Nausea [Unknown]
  - Liver function test abnormal [Unknown]
